FAERS Safety Report 5669454-7 (Version None)
Quarter: 2008Q1

REPORT INFORMATION
  Report Type: 
  Country: None (occurrence: None)
  Receive Date: 20080317
  Receipt Date: 20080313
  Transmission Date: 20080703
  Serious: Yes (Hospitalization)
  Sender: FDA-Public Use
  Company Number: B0512151A

PATIENT
  Age: 66 Year
  Sex: Male

DRUGS (5)
  1. REQUIP [Suspect]
     Indication: PARKINSON'S DISEASE
     Dosage: .25MG PER DAY
     Route: 048
     Dates: start: 20080127, end: 20080209
  2. CABERGOLINE [Concomitant]
     Dosage: 1MG TWICE PER DAY
     Route: 048
  3. SELEGILINE HCL [Concomitant]
     Route: 048
  4. CARBIDOPA AND LEVODOPA [Concomitant]
     Route: 065
  5. MAGNESIUM OXIDE [Concomitant]
     Route: 065

REACTIONS (2)
  - HALLUCINATION [None]
  - PERSECUTORY DELUSION [None]
